FAERS Safety Report 6180687-6 (Version None)
Quarter: 2009Q2

REPORT INFORMATION
  Report Type: 
  Country: None (occurrence: None)
  Receive Date: 20090506
  Receipt Date: 20090430
  Transmission Date: 20091009
  Serious: Yes (Death, Hospitalization)
  Sender: FDA-Public Use
  Company Number: ES-ROCHE-585504

PATIENT
  Sex: Male
  Weight: 75 kg

DRUGS (5)
  1. CAPECITABINE [Suspect]
     Dosage: DOSAGE FORM: TABLETS, 1 TO 14 DAYS EVERY 3 WEEKS THERAPY PERMANENTLY DISCONTINUED
     Route: 048
     Dates: start: 20080819, end: 20080902
  2. BEVACIZUMAB [Suspect]
     Dosage: DOSAGE FORM: INFUSION, THERAPY PERMANANTLY DISCONTINUED
     Route: 054
     Dates: start: 20080819, end: 20080819
  3. OXALIPLATIN [Suspect]
     Dosage: DOSAGE FORM: INFUSSION THERAPY PERMANENTLY DISCONTINUED
     Route: 042
     Dates: start: 20080819, end: 20080819
  4. ENALAPRIL MALEATE [Concomitant]
  5. PRAVASTATINA [Concomitant]

REACTIONS (2)
  - DIARRHOEA [None]
  - SEPTIC SHOCK [None]
